FAERS Safety Report 8608648-5 (Version None)
Quarter: 2012Q3

REPORT INFORMATION
  Report Type: 
  Country: None (occurrence: None)
  Receive Date: 20120809
  Receipt Date: 20120809
  Transmission Date: 20120928
  Serious: Yes (Disabling)
  Sender: FDA-Public Use
  Company Number: None

PATIENT
  Age: 74 Year
  Sex: Female
  Weight: 65.7716 kg

DRUGS (1)
  1. TERBINAFINE HCL [Suspect]
     Indication: NAIL INFECTION
     Dosage: 1 PER DAY PO
     Route: 048
     Dates: start: 20120604, end: 20120803

REACTIONS (2)
  - DYSGEUSIA [None]
  - AGEUSIA [None]
